FAERS Safety Report 5305950-X (Version None)
Quarter: 2007Q2

REPORT INFORMATION
  Report Type: 
  Country: None (occurrence: None)
  Receive Date: 20070420
  Receipt Date: 20070420
  Transmission Date: 20071010
  Serious: No
  Sender: FDA-Public Use
  Company Number: None

PATIENT
  Sex: Female
  Weight: 66.8 kg

DRUGS (7)
  1. CYCLOPHOSPHAMIDE [Suspect]
     Dosage: 4000 MG
  2. TAXOTERE [Suspect]
     Dosage: 240 MG
  3. DOXORUBICIN HYDROCHLORIDE [Suspect]
     Dosage: 100 MG
  4. ZOFRAN [Concomitant]
  5. ATARAX [Concomitant]
  6. ATIVAN [Concomitant]
  7. CLARITIN [Concomitant]

REACTIONS (8)
  - DRUG ERUPTION [None]
  - HYPERSENSITIVITY [None]
  - PAIN [None]
  - RASH MACULO-PAPULAR [None]
  - RASH MORBILLIFORM [None]
  - RASH PRURITIC [None]
  - SKIN LESION [None]
  - VARICELLA [None]
